FAERS Safety Report 12383570 (Version 1)
Quarter: 2016Q2

REPORT INFORMATION
  Report Type: Report from Study
  Country: US (occurrence: US)
  Receive Date: 20160518
  Receipt Date: 20160518
  Transmission Date: 20160815
  Serious: Yes (Hospitalization, Other)
  Sender: FDA-Public Use
  Company Number: US-ABBVIE-16P-163-1624371-00

PATIENT
  Age: 42 Year
  Sex: Female

DRUGS (3)
  1. LUPRON DEPOT [Suspect]
     Active Substance: LEUPROLIDE ACETATE
     Indication: ENDOMETRIOSIS
     Dosage: RECEIVED 2 INJECTIONS.
     Route: 050
     Dates: start: 2001
  2. NORETHINDRONE ACETATE. [Concomitant]
     Active Substance: NORETHINDRONE ACETATE
     Indication: PRODUCT USED FOR UNKNOWN INDICATION
     Route: 048
     Dates: start: 201512
  3. LUPRON DEPOT [Suspect]
     Active Substance: LEUPROLIDE ACETATE
     Route: 050
     Dates: start: 201511

REACTIONS (12)
  - Urosepsis [Recovered/Resolved]
  - Endometrial ablation [Recovered/Resolved]
  - Exposure during pregnancy [Not Recovered/Not Resolved]
  - Menorrhagia [Recovered/Resolved]
  - Depression [Not Recovered/Not Resolved]
  - Hypertension [Not Recovered/Not Resolved]
  - Hypothyroidism [Not Recovered/Not Resolved]
  - Hot flush [Recovering/Resolving]
  - Kidney fibrosis [Recovered/Resolved]
  - Mood swings [Recovering/Resolving]
  - Gallbladder operation [Recovered/Resolved]
  - Endometriosis [Unknown]

NARRATIVE: CASE EVENT DATE: 2009
